FAERS Safety Report 8520039 (Version 2)
Quarter: 2014Q3

REPORT INFORMATION
  Report Type: Report from Study
  Country: US (occurrence: US)
  Receive Date: 20120418
  Receipt Date: 20140919
  Transmission Date: 20150326
  Serious: Yes (Death, Other)
  Sender: FDA-Public Use
  Company Number: PHHO2012US005954

PATIENT
  Age: 75 Year
  Sex: Male
  Weight: 69.4 kg

DRUGS (15)
  1. KEFLEX [Concomitant]
     Active Substance: CEPHALEXIN
     Dosage: 500 MG, BID
     Route: 048
  2. NEXIUM [Concomitant]
     Active Substance: ESOMEPRAZOLE MAGNESIUM
     Dosage: 40 MG, QD
     Route: 048
  3. MYLANTA [Concomitant]
     Active Substance: ALUMINUM HYDROXIDE\MAGNESIUM HYDROXIDE\SIMETHICONE
     Dosage: 1 SWIG, PRN
     Route: 048
  4. NASONEX [Concomitant]
     Active Substance: MOMETASONE FUROATE
     Dosage: 4 SPRAYS, PRN
     Route: 062
  5. AFINITOR [Suspect]
     Active Substance: EVEROLIMUS
     Indication: ADENOCARCINOMA
     Dosage: 10 MG, QD
     Route: 048
     Dates: start: 20111229, end: 20120220
  6. CARAFATE [Concomitant]
     Active Substance: SUCRALFATE
     Dosage: 1 G, QID
     Route: 048
  7. SANCOS [Concomitant]
     Dosage: 3.1/24 HOURS, QD
     Route: 062
  8. VALTREX [Concomitant]
     Active Substance: VALACYCLOVIR HYDROCHLORIDE
     Dosage: 1000 MG, BID
     Route: 048
  9. LOVENOX [Concomitant]
     Active Substance: ENOXAPARIN SODIUM
     Dosage: 20-120 MG, QD
     Route: 048
  10. AVAPRO [Concomitant]
     Active Substance: IRBESARTAN
     Dosage: 150 MG, QD
     Route: 048
  11. VERAPAMIL [Concomitant]
     Active Substance: VERAPAMIL HYDROCHLORIDE
     Dosage: 240 MG, QD
     Route: 048
  12. IRON [Concomitant]
     Active Substance: IRON
     Dosage: 240 MG, UNK
     Route: 048
  13. ZOFRAN [Concomitant]
     Active Substance: ONDANSETRON HYDROCHLORIDE
     Dosage: 8 MG, PRN
     Route: 048
  14. ASPIRIN. [Concomitant]
     Active Substance: ASPIRIN
     Dosage: 81 MG, QD
     Route: 048
  15. QVAR [Concomitant]
     Active Substance: BECLOMETHASONE DIPROPIONATE
     Dosage: 160 MCG, PRN
     Route: 062

REACTIONS (3)
  - Respiratory distress [Unknown]
  - Cardiopulmonary failure [Fatal]
  - Respiratory failure [Unknown]

NARRATIVE: CASE EVENT DATE: 20120221
